FAERS Safety Report 9638360 (Version 1)
Quarter: 2013Q4

REPORT INFORMATION
  Report Type: Spontaneous
  Country: CN (occurrence: CN)
  Receive Date: 20131022
  Receipt Date: 20131022
  Transmission Date: 20140711
  Serious: Yes (Other)
  Sender: FDA-Public Use
  Company Number: CN-GLAXOSMITHKLINE-B0929458A

PATIENT
  Age: 61 Year
  Sex: Male
  Weight: 83 kg

DRUGS (1)
  1. ARIXTRA [Suspect]
     Indication: ANGINA PECTORIS
     Dosage: 2.5G PER DAY
     Route: 058
     Dates: start: 20120903, end: 20120903

REACTIONS (3)
  - Amaurosis [Recovering/Resolving]
  - Blindness [Recovering/Resolving]
  - Hyperhidrosis [Recovering/Resolving]
